FAERS Safety Report 4505394-4 (Version None)
Quarter: 2004Q4

REPORT INFORMATION
  Report Type: 
  Country: None (occurrence: None)
  Receive Date: 20041118
  Receipt Date: 20041118
  Transmission Date: 20050328
  Serious: Yes (Hospitalization)
  Sender: FDA-Public Use
  Company Number: None

PATIENT
  Age: 57 Year
  Sex: Female

DRUGS (15)
  1. GATIFLOXACIN [Suspect]
     Indication: URINARY TRACT INFECTION
     Dosage: 400 MG DAILY ORAL
     Route: 048
     Dates: start: 20040429, end: 20040503
  2. LEVOTHYROXINE SYNTHROID [Concomitant]
  3. . [Concomitant]
  4. MORPHINE SULFATE [Concomitant]
  5. . [Concomitant]
  6. MORPHINE SULFATE [Concomitant]
  7. PHENERGAN [Concomitant]
  8. . [Concomitant]
  9. NEURONTIN [Concomitant]
  10. . [Concomitant]
  11. MIRALAX [Concomitant]
  12. PREVACID [Concomitant]
  13. . [Concomitant]
  14. FERROUS SULFATE TAB [Concomitant]
  15. LITHIUM [Concomitant]

REACTIONS (1)
  - MENTAL STATUS CHANGES [None]
